FAERS Safety Report 7598104-8 (Version None)
Quarter: 2011Q3

REPORT INFORMATION
  Report Type: 
  Country: None (occurrence: None)
  Receive Date: 20110708
  Receipt Date: 20110629
  Transmission Date: 20111222
  Serious: Yes (Hospitalization, Disabling, Other)
  Sender: FDA-Public Use
  Company Number: BR-ASTRAZENECA-2011SE19054

PATIENT
  Age: 64 Year
  Sex: Male
  Weight: 42.6 kg

DRUGS (5)
  1. SEROQUEL [Suspect]
     Indication: INSOMNIA
     Route: 048
     Dates: start: 20110101, end: 20110322
  2. MONOCORDIL [Concomitant]
     Indication: HYPERTENSION
     Route: 048
     Dates: start: 20070101
  3. ATACAND [Suspect]
     Indication: HYPERTENSION
     Route: 048
     Dates: start: 20070101
  4. ASPIRIN [Concomitant]
     Route: 048
     Dates: start: 20070101
  5. DOXAZOSIN MESYLATE [Concomitant]
     Indication: PROSTATIC DISORDER
     Route: 048
     Dates: start: 20090101

REACTIONS (10)
  - DRUG DOSE OMISSION [None]
  - BLOOD CHOLESTEROL INCREASED [None]
  - DRUG PRESCRIBING ERROR [None]
  - CATHETERISATION CARDIAC [None]
  - DIABETES MELLITUS [None]
  - INSOMNIA [None]
  - BLOOD PRESSURE INADEQUATELY CONTROLLED [None]
  - SUICIDAL IDEATION [None]
  - MYOCARDIAL INFARCTION [None]
  - MUSCLE RUPTURE [None]
